FAERS Safety Report 4593827-7 (Version None)
Quarter: 2005Q1

REPORT INFORMATION
  Report Type: 
  Country: None (occurrence: None)
  Receive Date: 20050301
  Receipt Date: 20050217
  Transmission Date: 20050727
  Serious: Yes (Death, Life-Threatening, Hospitalization)
  Sender: FDA-Public Use
  Company Number: SA-JNJFOC-20041100221

PATIENT
  Sex: Male

DRUGS (5)
  1. CAELYX [Suspect]
     Route: 042
  2. ZANTAC [Concomitant]
     Indication: PROPHYLAXIS
     Route: 049
  3. ATENOLOL [Concomitant]
     Indication: HYPERTENSION
     Route: 049
  4. COLACE [Concomitant]
     Indication: CONSTIPATION
     Route: 049
  5. GLIBENCLAMIDE [Concomitant]
     Route: 049

REACTIONS (8)
  - ABDOMINAL PAIN [None]
  - ALANINE AMINOTRANSFERASE INCREASED [None]
  - ASPARTATE AMINOTRANSFERASE INCREASED [None]
  - DIARRHOEA [None]
  - DRUG TOXICITY [None]
  - HYPERBILIRUBINAEMIA [None]
  - OVERDOSE [None]
  - WEIGHT DECREASED [None]
